FAERS Safety Report 5747619-3 (Version None)
Quarter: 2008Q2

REPORT INFORMATION
  Report Type: 
  Country: None (occurrence: None)
  Receive Date: 20080523
  Receipt Date: 20080515
  Transmission Date: 20081010
  Serious: Yes (Death)
  Sender: FDA-Public Use
  Company Number: JP-ASTRAZENECA-2008SE02533

PATIENT
  Age: 79 Year
  Sex: Male

DRUGS (3)
  1. BLOPRESS [Suspect]
     Indication: HYPERTENSION
     Route: 048
     Dates: start: 20070722, end: 20070824
  2. GLYCEROL 2.6% [Concomitant]
     Indication: CEREBRAL HAEMORRHAGE
     Route: 042
     Dates: start: 20070721, end: 20070803
  3. MYOCOR [Concomitant]
     Indication: HYPERTENSION
     Route: 042
     Dates: start: 20070721, end: 20070721

REACTIONS (3)
  - DISSEMINATED INTRAVASCULAR COAGULATION [None]
  - GASTROINTESTINAL HAEMORRHAGE [None]
  - RENAL IMPAIRMENT [None]
